FAERS Safety Report 4386452-4 (Version None)
Quarter: 2004Q2

REPORT INFORMATION
  Report Type: 
  Country: None (occurrence: None)
  Receive Date: 20040625
  Receipt Date: 20040625
  Transmission Date: 20050107
  Serious: Yes (Death)
  Sender: FDA-Public Use
  Company Number: None

PATIENT
  Age: 44 Year
  Sex: Female
  Weight: 62.5964 kg

DRUGS (2)
  1. MIDAZOLAM HCL [Suspect]
     Indication: SEDATION
     Dosage: 1 MG AND .1 MG
     Dates: start: 20031114
  2. FENTANYL [Suspect]
     Dosage: 50 MCG 50 MCG
     Dates: start: 20031104

REACTIONS (4)
  - BRADYCARDIA [None]
  - CARDIO-RESPIRATORY ARREST [None]
  - DIALYSIS [None]
  - ELECTROMECHANICAL DISSOCIATION [None]
